FAERS Safety Report 8203270-7 (Version None)
Quarter: 2012Q1

REPORT INFORMATION
  Report Type: 
  Country: None (occurrence: None)
  Receive Date: 20120312
  Receipt Date: 20120302
  Transmission Date: 20120608
  Serious: Yes (Other)
  Sender: FDA-Public Use
  Company Number: FR-ROCHE-1047041

PATIENT
  Age: 52 Year
  Sex: Male

DRUGS (1)
  1. XOLAIR [Suspect]
     Indication: ASTHMA
     Dates: start: 20071101

REACTIONS (2)
  - MONOCLONAL GAMMOPATHY [None]
  - BONE PAIN [None]
